FAERS Safety Report 15046048 (Version 1)
Quarter: 2018Q2

REPORT INFORMATION
  Report Type: Spontaneous
  Country: NL (occurrence: NL)
  Receive Date: 20180621
  Receipt Date: 20180621
  Transmission Date: 20180711
  Serious: Yes (Other)
  Sender: FDA-Public Use
  Company Number: NL-TEVA-2018-NL-910649

PATIENT
  Age: 78 Year
  Sex: Male
  Weight: 58 kg

DRUGS (2)
  1. AMIODARON 200MG [Concomitant]
     Dosage: 200 MILLIGRAM DAILY;
  2. PRAVASTATIN. [Suspect]
     Active Substance: PRAVASTATIN
     Indication: CORONARY ARTERY BYPASS
     Dates: start: 20170101, end: 20180419

REACTIONS (1)
  - Polyneuropathy [Recovering/Resolving]

NARRATIVE: CASE EVENT DATE: 20170301
